FAERS Safety Report 4855034-X (Version None)
Quarter: 2005Q4

REPORT INFORMATION
  Report Type: 
  Country: None (occurrence: None)
  Receive Date: 20051214
  Receipt Date: 20051128
  Transmission Date: 20060501
  Serious: Yes (Other)
  Sender: FDA-Public Use
  Company Number: 2005160025

PATIENT
  Age: 83 Year
  Sex: Male

DRUGS (7)
  1. HALCION [Suspect]
     Indication: INSOMNIA
     Dosage: 0.125 MG (1 IN 1 D), ORAL
     Route: 048
  2. HARNAL (TAMSULOSIN HYDROCHLORIDE) [Suspect]
     Indication: BENIGN PROSTATIC HYPERPLASIA
     Dosage: 0.2 MG (1 IN 1 D), ORAL
     Route: 048
  3. ACECOL (TEMOCAPRIL HYDROCHLORIDE) [Suspect]
     Indication: HYPERTENSION
     Dosage: 2 MG (1 IN 1 D), ORAL
     Route: 048
  4. MEILAX (ETHYL LOFLAZEPATE) [Suspect]
     Indication: INSOMNIA
     Dosage: 1 MG (1 IN 1 D), ORAL
     Route: 048
  5. ATENOLOL [Concomitant]
  6. GOSHAJINKIGAN (HERBAL EXTRACTS NOS) [Concomitant]
  7. MAGNESIUM OXIDE (MAGNESIUM OXIDE) [Concomitant]

REACTIONS (5)
  - DERMATITIS CONTACT [None]
  - DERMATITIS EXFOLIATIVE [None]
  - LYMPHOCYTIC INFILTRATION [None]
  - LYMPHOMA [None]
  - MYCOSIS FUNGOIDES [None]
